FAERS Safety Report 7588553-6 (Version None)
Quarter: 2011Q3

REPORT INFORMATION
  Report Type: 
  Country: None (occurrence: None)
  Receive Date: 20110705
  Receipt Date: 20110621
  Transmission Date: 20111222
  Serious: Yes (Hospitalization)
  Sender: FDA-Public Use
  Company Number: CZ-RANBAXY-2011R1-45629

PATIENT
  Age: 46 Year
  Sex: Male

DRUGS (7)
  1. HYDROCORTISONE [Suspect]
     Dosage: UNK
     Route: 065
  2. HYDROCORTISONE [Suspect]
     Dosage: 30 MG/ DAY
     Route: 048
  3. HYDROCORTISONE [Suspect]
     Indication: PRODUCT USED FOR UNKNOWN INDICATION
     Dosage: 60 MG/ DAY
     Route: 048
  4. HYDROCORTISONE [Suspect]
     Dosage: 20 MG/ DAY
     Route: 048
  5. PREDNISONE [Suspect]
     Indication: URTICARIA CHRONIC
     Dosage: UNK
     Route: 065
  6. METHYLPREDNISOLONE [Suspect]
     Indication: PRODUCT USED FOR UNKNOWN INDICATION
     Dosage: 16 MG, TID
     Route: 048
  7. HYDROCORTISONE [Suspect]
     Indication: URTICARIA CHRONIC
     Dosage: UNK
     Route: 065

REACTIONS (2)
  - HYPOTHALAMO-PITUITARY DISORDER [None]
  - CUSHING'S SYNDROME [None]
